FAERS Safety Report 4717687-6 (Version None)
Quarter: 2005Q3

REPORT INFORMATION
  Report Type: 
  Country: None (occurrence: None)
  Receive Date: 20050715
  Receipt Date: 20050701
  Transmission Date: 20060218
  Serious: Yes (Other)
  Sender: FDA-Public Use
  Company Number: US-2005-012517

PATIENT
  Age: 55 Year

DRUGS (1)
  1. REFLUDAN [Suspect]
     Dates: end: 20050626

REACTIONS (4)
  - ACTIVATED PARTIAL THROMBOPLASTIN TIME PROLONGED [None]
  - HAEMODIALYSIS [None]
  - RENAL FAILURE [None]
  - WOUND HAEMORRHAGE [None]
